FAERS Safety Report 5097474-2 (Version None)
Quarter: 2006Q3

REPORT INFORMATION
  Report Type: 
  Country: None (occurrence: None)
  Receive Date: 20060901
  Receipt Date: 20060816
  Transmission Date: 20061208
  Serious: Yes (Hospitalization)
  Sender: FDA-Public Use
  Company Number: US200512002832

PATIENT
  Age: 47 Year
  Sex: Female
  Weight: 90.7 kg

DRUGS (1)
  1. ZYPREXA [Suspect]
     Indication: DEPRESSION
     Dosage: 5 MG
     Dates: start: 20020101, end: 20030901

REACTIONS (5)
  - CHEST PAIN [None]
  - CHOLELITHIASIS [None]
  - DIABETES MELLITUS [None]
  - RECTAL HAEMORRHAGE [None]
  - VISION BLURRED [None]
